FAERS Safety Report 4277818-1 (Version None)
Quarter: 2004Q1

REPORT INFORMATION
  Report Type: 
  Country: None (occurrence: None)
  Receive Date: 20040121
  Receipt Date: 20040109
  Transmission Date: 20041129
  Serious: Yes (Death, Hospitalization)
  Sender: FDA-Public Use
  Company Number: JP-JNJFOC-20031204892

PATIENT
  Age: 63 Year
  Sex: Male

DRUGS (6)
  1. DUROTEP (FEANTNYL) PATCH [Suspect]
     Indication: CANCER PAIN
     Dosage: TRANSDERMAL
     Route: 062
     Dates: start: 20030101, end: 20030301
  2. HALOPERIDOL [Concomitant]
  3. CHLOPROMAZINE (CHLORPROMAZINE) [Concomitant]
  4. HYDROXYZINE HCL [Concomitant]
  5. NOPIVACAINE (NOPIVACAINE) [Concomitant]
  6. MORPHINE HYDROCHLORIDE (MORPHINE HYDROCHLORIDE) [Concomitant]

REACTIONS (12)
  - ANXIETY [None]
  - COLON CANCER [None]
  - DEPRESSED LEVEL OF CONSCIOUSNESS [None]
  - DISORIENTATION [None]
  - HEPATIC FUNCTION ABNORMAL [None]
  - INSOMNIA [None]
  - MALIGNANT NEOPLASM PROGRESSION [None]
  - NARCOTIC INTOXICATION [None]
  - PAIN [None]
  - POST PROCEDURAL COMPLICATION [None]
  - PYREXIA [None]
  - RESPIRATORY DEPRESSION [None]
